FAERS Safety Report 6648275-2 (Version None)
Quarter: 2010Q1

REPORT INFORMATION
  Report Type: 
  Country: None (occurrence: None)
  Receive Date: 20100324
  Receipt Date: 20100312
  Transmission Date: 20100710
  Serious: Yes (Death, Congenital Anomaly)
  Sender: FDA-Public Use
  Company Number: TR-BAYER-201019314GPV

PATIENT
  Sex: Female
  Weight: 1.6 kg

DRUGS (1)
  1. ASPIRIN [Suspect]
     Indication: DRUG USE FOR UNKNOWN INDICATION
     Dosage: 500 G BID VIA MOTHER
     Route: 048

REACTIONS (6)
  - CONGENITAL JAW MALFORMATION [None]
  - CONGENITAL NOSE MALFORMATION [None]
  - CONGENITAL ORAL MALFORMATION [None]
  - CYCLOPIA [None]
  - HOLOPROSENCEPHALY [None]
  - TRACHEO-OESOPHAGEAL FISTULA [None]
